FAERS Safety Report 10222768 (Version 2)
Quarter: 2014Q2

REPORT INFORMATION
  Report Type: Report from Study
  Country: HU (occurrence: HU)
  Receive Date: 20140606
  Receipt Date: 20140606
  Transmission Date: 20141212
  Serious: Yes (Hospitalization)
  Sender: FDA-Public Use
  Company Number: HU-BRISTOL-MYERS SQUIBB COMPANY-20214771

PATIENT
  Age: 48 Year
  Sex: Female

DRUGS (7)
  1. CARBOPLATIN [Suspect]
     Indication: SMALL CELL LUNG CANCER
     Dosage: 30DEC13-30DEC13:510MG?21JAN14:543 MG (COURSE 1)
     Route: 042
     Dates: start: 20131230, end: 20140121
  2. ETOPOSIDE [Suspect]
     Indication: SMALL CELL LUNG CANCER
     Dosage: 30DEC13-01JAN14:174MG?30DEC13-21JAN14:174MG?21JAN14-23JAN14:174MG (COURSE 3)
     Route: 042
     Dates: start: 20131230, end: 20140123
  3. AMLODIPINE [Concomitant]
     Dates: start: 2008
  4. COAXIL [Concomitant]
     Dates: start: 2000
  5. FRONTIN [Concomitant]
     Dates: start: 2000
  6. SINECOD [Concomitant]
     Dates: start: 20131231
  7. FORMOTEROL FUMARATE [Concomitant]
     Dates: start: 20131231

REACTIONS (1)
  - Neutropenia [Recovered/Resolved]
